FAERS Safety Report 8541263-0 (Version None)
Quarter: 2012Q3

REPORT INFORMATION
  Report Type: 
  Country: None (occurrence: None)
  Receive Date: 20120726
  Receipt Date: 20120723
  Transmission Date: 20120928
  Serious: Yes (Other)
  Sender: FDA-Public Use
  Company Number: GB-PFIZER INC-2012177028

PATIENT
  Age: 52 Year
  Sex: Female
  Weight: 78 kg

DRUGS (7)
  1. LIPITOR [Suspect]
     Indication: BLOOD CHOLESTEROL INCREASED
     Dosage: 10 MG; ONLY HAD 2 OF THESE TABLETS
     Route: 048
     Dates: start: 20120503, end: 20120504
  2. LOVAZA [Concomitant]
     Dosage: UNK
  3. GARLIC OIL ESSENTIAL [Concomitant]
     Dosage: UNK
  4. ECHINACEA [Concomitant]
     Dosage: UNK
  5. SIMVASTATIN [Concomitant]
     Indication: BLOOD CHOLESTEROL INCREASED
     Dosage: 40 MG UNIT DOSE
     Route: 048
     Dates: start: 20120419, end: 20120424
  6. VITAMIN B-12 [Concomitant]
     Dosage: UNK
  7. COENZYME Q10 [Concomitant]
     Dosage: UNK

REACTIONS (1)
  - HYPOAESTHESIA [None]
